FAERS Safety Report 11768427 (Version 1)
Quarter: 2015Q4

REPORT INFORMATION
  Report Type: Other
  Country: GB (occurrence: GB)
  Receive Date: 20151123
  Receipt Date: 20151123
  Transmission Date: 20160304
  Serious: Yes (Hospitalization)
  Sender: FDA-Public Use
  Company Number: GB-MYLANLABS-2015M1039817

PATIENT

DRUGS (3)
  1. LOPERAMIDE [Concomitant]
     Active Substance: LOPERAMIDE
     Dosage: UNK
  2. CAPECITABINE. [Suspect]
     Active Substance: CAPECITABINE
     Indication: GASTROINTESTINAL CARCINOMA
     Dosage: 2500 MG, UNK
     Route: 048
     Dates: start: 20151026
  3. DOMPERIDONE [Concomitant]
     Active Substance: DOMPERIDONE
     Dosage: UNK

REACTIONS (1)
  - Arteriospasm coronary [Recovering/Resolving]

NARRATIVE: CASE EVENT DATE: 20151026
